FAERS Safety Report 7928650-6 (Version None)
Quarter: 2011Q4

REPORT INFORMATION
  Report Type: 
  Country: None (occurrence: None)
  Receive Date: 20111118
  Receipt Date: 20111109
  Transmission Date: 20120403
  Serious: Yes (Other)
  Sender: FDA-Public Use
  Company Number: US-ABBOTT-11P-163-0873027-00

PATIENT
  Sex: Male
  Weight: 93.07 kg

DRUGS (4)
  1. EXFORGE [Concomitant]
     Indication: BLOOD PRESSURE
  2. ANDROGEL [Suspect]
     Indication: BLOOD TESTOSTERONE DECREASED
     Dosage: 4 PUMPS PER DAY APPLIES ON UPPER ARMS
     Dates: start: 20100701
  3. ASPIRIN [Concomitant]
     Indication: PRODUCT USED FOR UNKNOWN INDICATION
  4. LIPITOR [Concomitant]
     Indication: BLOOD CHOLESTEROL

REACTIONS (2)
  - NEOPLASM MALIGNANT [None]
  - PROSTATIC SPECIFIC ANTIGEN INCREASED [None]
